FAERS Safety Report 6129595-7 (Version None)
Quarter: 2009Q1

REPORT INFORMATION
  Report Type: 
  Country: None (occurrence: None)
  Receive Date: 20090324
  Receipt Date: 20090311
  Transmission Date: 20090719
  Serious: Yes (Life-Threatening, Hospitalization, Other)
  Sender: FDA-Public Use
  Company Number: FR-SANOFI-SYNTHELABO-F01200801254

PATIENT
  Sex: Male

DRUGS (12)
  1. ACETYLSALICYLATE DE LYSINE [Concomitant]
     Indication: ANXIETY
     Dosage: 160 MG
     Dates: start: 20051201, end: 20080206
  2. PINDOLOL [Concomitant]
     Indication: ANGINA PECTORIS
     Dosage: 50 MG
     Dates: start: 20080207
  3. ALLOPURINOL SODIUM [Concomitant]
     Indication: GOUT
     Dosage: 100 MG
     Dates: start: 20070201, end: 20080330
  4. PANTOPRAZOLE SODIUM [Concomitant]
     Indication: GASTRITIS
     Dosage: 20 MG
     Dates: start: 20020101
  5. CLOPIDOGREL SULFATE [Concomitant]
     Indication: ANXIETY
     Dosage: 75 MG
     Dates: start: 20051201
  6. PRAVASTATIN SODIUM [Concomitant]
     Indication: HYPERCHOLESTEROLAEMIA
     Dosage: 20 MG
     Dates: start: 19980201
  7. PAROXETINE HYDROCHLORIDE [Concomitant]
     Indication: DEPRESSION
     Dosage: 20 MG
     Dates: start: 20050101
  8. AMLODIPINE BESYLATE [Concomitant]
     Indication: HYPERCHOLESTEROLAEMIA
     Dosage: 20 MG
     Dates: start: 19980201
  9. FLURBIPROFEN [Concomitant]
     Indication: ANGINA PECTORIS
     Dosage: 100 MG
     Dates: start: 20080629
  10. KARDEGIC [Concomitant]
     Indication: ANGINA PECTORIS
     Dosage: 160 MG
     Route: 048
     Dates: start: 20051201, end: 20080206
  11. ELIGARD [Suspect]
     Indication: PROSTATE CANCER
     Dosage: 22.5 MG
     Route: 058
     Dates: start: 20080425, end: 20080425
  12. BICALUTAMIDE [Suspect]
     Dosage: 50 MG
     Route: 048
     Dates: start: 20080425, end: 20080524

REACTIONS (2)
  - MALIGNANT NEOPLASM PROGRESSION [None]
  - RENAL FAILURE ACUTE [None]
